FAERS Safety Report 7644180-3 (Version None)
Quarter: 2011Q3

REPORT INFORMATION
  Report Type: 
  Country: None (occurrence: None)
  Receive Date: 20110728
  Receipt Date: 20110728
  Transmission Date: 20111222
  Serious: Yes (Life-Threatening, Other)
  Sender: FDA-Public Use
  Company Number: None

PATIENT
  Age: 18 Year
  Sex: Male
  Weight: 79.3795 kg

DRUGS (2)
  1. ANTIBIOTICS [Concomitant]
  2. ACCUTANE [Suspect]
     Indication: ACNE
     Dosage: ABOUT 100MG ONCE A DAY BEFORE SLEEP FOR 4 MONTS (DEC TO MARCH )
     Dates: start: 20051201, end: 20060301

REACTIONS (4)
  - ANXIETY [None]
  - APATHY [None]
  - DEPRESSION [None]
  - ORGANIC ERECTILE DYSFUNCTION [None]
